FAERS Safety Report 5726867-2 (Version None)
Quarter: 2008Q2

REPORT INFORMATION
  Report Type: 
  Country: None (occurrence: None)
  Receive Date: 20080502
  Receipt Date: 20080423
  Transmission Date: 20081010
  Serious: Yes (Hospitalization, Other)
  Sender: FDA-Public Use
  Company Number: AT-PFIZER INC-2008035676

PATIENT
  Sex: Female

DRUGS (12)
  1. CABERGOLINE [Suspect]
     Dosage: DAILY DOSE:1MG-FREQ:DAILY
     Route: 048
  2. MADOPAR CR [Concomitant]
     Route: 048
  3. DEDOLOR [Concomitant]
     Route: 048
  4. TEBOFORTAN [Concomitant]
     Route: 048
  5. THROMBO ASS [Concomitant]
     Route: 048
  6. TRAMADOL HCL [Concomitant]
     Route: 048
  7. EFFORTIL [Concomitant]
     Route: 048
  8. LESCOL [Concomitant]
     Route: 048
  9. EUTHYROX [Concomitant]
     Route: 048
  10. MADOPAR [Concomitant]
     Route: 048
  11. DAFLON [Concomitant]
     Route: 048
  12. ACTONEL WITH CALCIUM (COPACKAGED) [Suspect]
     Route: 048

REACTIONS (5)
  - CIRCULATORY COLLAPSE [None]
  - DIZZINESS [None]
  - HYPOTENSION [None]
  - LOSS OF CONSCIOUSNESS [None]
  - SPEECH DISORDER [None]
